FAERS Safety Report 8262626-7 (Version None)
Quarter: 2012Q2

REPORT INFORMATION
  Report Type: 
  Country: None (occurrence: None)
  Receive Date: 20120405
  Receipt Date: 20120328
  Transmission Date: 20120825
  Serious: Yes (Hospitalization)
  Sender: FDA-Public Use
  Company Number: CA-JNJFOC-20120314094

PATIENT
  Sex: Male

DRUGS (13)
  1. MULTI-VITAMINS [Concomitant]
     Route: 065
  2. ATROVENT [Concomitant]
     Indication: LUNG INFECTION
     Route: 065
  3. NORTRIPTYLINE HCL [Concomitant]
     Route: 065
  4. OLANZAPINE [Concomitant]
     Route: 065
  5. VITAMIN B6 [Concomitant]
     Route: 065
  6. FLOMAX [Concomitant]
     Indication: PROSTATE CANCER
     Route: 065
  7. BUPROPION HCL [Concomitant]
     Route: 065
  8. ALL OTHER THERAPEUTICS [Concomitant]
     Route: 065
  9. PANTOPRAZOLE [Concomitant]
     Route: 065
  10. REMICADE [Suspect]
     Indication: CROHN'S DISEASE
     Route: 042
     Dates: start: 20120328
  11. REMICADE [Suspect]
     Dosage: 4TH INFUSION
     Route: 042
     Dates: end: 20120101
  12. ISONIAZID [Concomitant]
     Route: 065
  13. VITAMIN B-12 [Concomitant]
     Route: 065

REACTIONS (2)
  - SYNCOPE [None]
  - HYPOTENSION [None]
